FAERS Safety Report 21237639 (Version 1)
Quarter: 2022Q3

REPORT INFORMATION
  Report Type: Spontaneous
  Country: US (occurrence: US)
  Receive Date: 20220822
  Receipt Date: 20220822
  Transmission Date: 20221027
  Serious: No
  Sender: FDA-Public Use
  Company Number: US-NOVARTISTESTPH-NVSC2022US185932

PATIENT
  Age: 69 Year
  Sex: Female
  Weight: 211 kg

DRUGS (1)
  1. LEQVIO [Suspect]
     Active Substance: INCLISIRAN SODIUM
     Indication: Arteriosclerosis
     Dosage: 284 MG, (1.5 ML), (TWICE A YEAR)
     Route: 058

REACTIONS (1)
  - Diarrhoea [Not Recovered/Not Resolved]
